FAERS Safety Report 8603559-3 (Version None)
Quarter: 2012Q3

REPORT INFORMATION
  Report Type: 
  Country: None (occurrence: None)
  Receive Date: 20120817
  Receipt Date: 20120813
  Transmission Date: 20120928
  Serious: Yes (Hospitalization)
  Sender: FDA-Public Use
  Company Number: PHHY2012IT071016

PATIENT

DRUGS (1)
  1. CEFTRIAXONE [Suspect]
     Indication: INTERSTITIAL LUNG DISEASE
     Dosage: 1 DF, DAILY
     Route: 030
     Dates: start: 20120424, end: 20120428

REACTIONS (3)
  - FAECALOMA [None]
  - ABDOMINAL DISTENSION [None]
  - ABDOMINAL PAIN [None]
